FAERS Safety Report 18716643 (Version 1)
Quarter: 2021Q1

REPORT INFORMATION
  Report Type: Spontaneous
  Country: US (occurrence: US)
  Receive Date: 20210107
  Receipt Date: 20210107
  Transmission Date: 20210419
  Serious: No
  Sender: FDA-Public Use
  Company Number: None

PATIENT
  Age: 41 Year
  Sex: Female

DRUGS (1)
  1. FAMOTIDINE 40MG [Suspect]
     Active Substance: FAMOTIDINE

REACTIONS (2)
  - Product substitution issue [None]
  - Gastrooesophageal reflux disease [None]
